FAERS Safety Report 7628954-0 (Version None)
Quarter: 2011Q3

REPORT INFORMATION
  Report Type: 
  Country: None (occurrence: None)
  Receive Date: 20110722
  Receipt Date: 20110712
  Transmission Date: 20111222
  Serious: Yes (Other)
  Sender: FDA-Public Use
  Company Number: US-BAYER-2011-001508

PATIENT
  Age: 49 Year
  Sex: Female
  Weight: 77.098 kg

DRUGS (3)
  1. YASMIN [Suspect]
     Indication: MENORRHAGIA
  2. YASMIN [Suspect]
     Indication: PREMENSTRUAL SYNDROME
     Dosage: UNK
     Route: 048
     Dates: start: 20021101, end: 20081101
  3. DROSPIRENONE AND ETHINYL ESTRADIOL [Suspect]
     Dosage: UNK
     Dates: start: 20081201, end: 20090601

REACTIONS (3)
  - VENOUS THROMBOSIS [None]
  - PAIN [None]
  - EMOTIONAL DISTRESS [None]
